FAERS Safety Report 7249228-6 (Version None)
Quarter: 2011Q1

REPORT INFORMATION
  Report Type: 
  Country: None (occurrence: None)
  Receive Date: 20110128
  Receipt Date: 20101207
  Transmission Date: 20110831
  Serious: Yes (Death)
  Sender: FDA-Public Use
  Company Number: US-BAYER-2010-002008

PATIENT
  Age: 25 Year
  Sex: Female

DRUGS (1)
  1. MIDOL PM CAPLETS [Suspect]
     Dosage: 100 DF, ONCE
     Route: 048

REACTIONS (6)
  - DRY SKIN [None]
  - HEPATIC FAILURE [None]
  - DRY MOUTH [None]
  - DEPRESSED LEVEL OF CONSCIOUSNESS [None]
  - SKIN WARM [None]
  - MENTAL IMPAIRMENT [None]
